FAERS Safety Report 19987605 (Version 1)
Quarter: 2021Q4

REPORT INFORMATION
  Report Type: Spontaneous
  Country: US (occurrence: US)
  Receive Date: 20211023
  Receipt Date: 20211023
  Transmission Date: 20220303
  Serious: No
  Sender: FDA-Public Use
  Company Number: US-NOVARTISTESTPH-NVSC2021US242485

PATIENT
  Sex: Male
  Weight: 59.8 kg

DRUGS (2)
  1. AZOPT [Suspect]
     Active Substance: BRINZOLAMIDE
     Indication: Product used for unknown indication
     Route: 065
  2. HETLIOZ [Suspect]
     Active Substance: TASIMELTEON
     Indication: Chromosomal deletion
     Dosage: 20 MG, QD
     Route: 048

REACTIONS (3)
  - Eye swelling [Unknown]
  - Ocular hyperaemia [Unknown]
  - Off label use [Unknown]
